FAERS Safety Report 5381638-4 (Version None)
Quarter: 2007Q2

REPORT INFORMATION
  Report Type: 
  Country: None (occurrence: None)
  Receive Date: 20070629
  Receipt Date: 20070430
  Transmission Date: 20071010
  Serious: Yes (Other)
  Sender: FDA-Public Use
  Company Number: A03200702836

PATIENT
  Age: 58 Year
  Sex: Female
  Weight: 99.7913 kg

DRUGS (10)
  1. AMBIEN [Suspect]
     Dosage: ORAL
     Route: 048
     Dates: start: 20061001, end: 20061001
  2. PIOGLITAZONE HCL [Concomitant]
  3. QUINAPRIL HCL [Concomitant]
  4. METOPROLOL SUCCINATE [Concomitant]
  5. HYDROCHLOROTHIAZIDE [Concomitant]
  6. AMLODIPINE BESYLATE [Concomitant]
  7. LANSOPRAZOLE [Concomitant]
  8. VITAMIN CAP [Concomitant]
  9. VITAMIN E [Concomitant]
  10. LUTEIN [Concomitant]

REACTIONS (5)
  - DISORIENTATION [None]
  - DYSSTASIA [None]
  - HALLUCINATION [None]
  - NAUSEA [None]
  - VOMITING [None]
